FAERS Safety Report 5133883-0 (Version None)
Quarter: 2006Q4

REPORT INFORMATION
  Report Type: 
  Country: None (occurrence: None)
  Receive Date: 20061018
  Receipt Date: 20061009
  Transmission Date: 20070319
  Serious: Yes (Hospitalization)
  Sender: FDA-Public Use
  Company Number: 2006RL000359

PATIENT
  Age: 74 Year
  Sex: Female
  Weight: 54.8852 kg

DRUGS (4)
  1. RYTHMOL [Suspect]
     Indication: VENTRICULAR TACHYCARDIA
     Dosage: 225 MG; BID; PO
     Route: 048
     Dates: start: 20060206, end: 20060925
  2. RYTHMOL [Suspect]
  3. BENICAR [Concomitant]
  4. TOPROL-XL [Concomitant]

REACTIONS (5)
  - COLD SWEAT [None]
  - ELECTROCARDIOGRAM QRS COMPLEX PROLONGED [None]
  - MALAISE [None]
  - PALLOR [None]
  - VENTRICULAR TACHYCARDIA [None]
